FAERS Safety Report 9423638 (Version 1)
Quarter: 2013Q3

REPORT INFORMATION
  Report Type: Spontaneous
  Country: US (occurrence: US)
  Receive Date: 20130726
  Receipt Date: 20130726
  Transmission Date: 20140515
  Serious: Yes (Other)
  Sender: FDA-Public Use
  Company Number: US-RB-056479-13

PATIENT
  Age: 43 Year
  Sex: Female

DRUGS (2)
  1. SUBOXONE TABLET [Suspect]
     Indication: PRODUCT USED FOR UNKNOWN INDICATION
     Dosage: DOSING DETAILS UNKNOWN
     Route: 065
  2. SUBOXONE FILM [Suspect]
     Indication: PRODUCT USED FOR UNKNOWN INDICATION
     Dosage: SUBOXONE FILM; DOSING DETAILS UNKNOWN
     Route: 065

REACTIONS (5)
  - Benign neoplasm [Not Recovered/Not Resolved]
  - Substance abuse [Not Recovered/Not Resolved]
  - Spinal disorder [Not Recovered/Not Resolved]
  - Colitis [Not Recovered/Not Resolved]
  - Uterine disorder [Recovered/Resolved]
